FAERS Safety Report 4536004-8 (Version None)
Quarter: 2005Q1

REPORT INFORMATION
  Report Type: 
  Country: None (occurrence: None)
  Receive Date: 20041216
  Receipt Date: 20040108
  Transmission Date: 20050727
  Serious: Yes (Other)
  Sender: FDA-Public Use
  Company Number: HQWYE222409JAN04

PATIENT
  Age: 28 Year
  Sex: Male
  Weight: 65.83 kg

DRUGS (1)
  1. EFFEXOR XR [Suspect]
     Indication: ANXIETY
     Dosage: 112.5 MG 1X PER 1 DAY, ORAL
     Route: 048
     Dates: start: 20020101, end: 20040102

REACTIONS (4)
  - FACE OEDEMA [None]
  - INFLUENZA [None]
  - OEDEMA PERIPHERAL [None]
  - URTICARIA [None]
